FAERS Safety Report 20592457 (Version 1)
Quarter: 2022Q1

REPORT INFORMATION
  Report Type: Report from Study
  Country: US (occurrence: US)
  Receive Date: 20220314
  Receipt Date: 20220314
  Transmission Date: 20220423
  Serious: Yes (Other)
  Sender: FDA-Public Use
  Company Number: US-JNJFOC-20220157311

PATIENT
  Age: 74 Year
  Sex: Female

DRUGS (2)
  1. MACITENTAN [Suspect]
     Active Substance: MACITENTAN
     Indication: Pulmonary arterial hypertension
     Route: 048
     Dates: start: 202112
  2. ADEMPAS [Suspect]
     Active Substance: RIOCIGUAT
     Indication: Product used for unknown indication
     Route: 065
     Dates: end: 20220124

REACTIONS (6)
  - Blood bilirubin increased [Not Recovered/Not Resolved]
  - Hypotension [Recovered/Resolved]
  - Nausea [Recovering/Resolving]
  - Visual impairment [Not Recovered/Not Resolved]
  - COVID-19 [Recovered/Resolved]
  - Pruritus [Recovering/Resolving]

NARRATIVE: CASE EVENT DATE: 20211227
